FAERS Safety Report 14075237 (Version 3)
Quarter: 2017Q4

REPORT INFORMATION
  Report Type: Spontaneous
  Country: CH (occurrence: CH)
  Receive Date: 20171011
  Receipt Date: 20171030
  Transmission Date: 20180321
  Serious: Yes (Disabling)
  Sender: FDA-Public Use
  Company Number: CH-BAYER-2017-192473

PATIENT
  Age: 63 Year
  Sex: Male

DRUGS (15)
  1. SIMVASTATIN. [Suspect]
     Active Substance: SIMVASTATIN
     Dosage: 100 MG, QD
  2. VALPROIC ACID. [Concomitant]
     Active Substance: VALPROIC ACID
     Indication: TENSION
  3. SIMVASTATIN. [Suspect]
     Active Substance: SIMVASTATIN
     Dosage: 20 MG, QD
     Route: 048
  4. ALLOPURINOL. [Suspect]
     Active Substance: ALLOPURINOL
     Dosage: 150 MG, QD
  5. VALPROIC ACID. [Concomitant]
     Active Substance: VALPROIC ACID
     Indication: INSOMNIA
  6. VALPROIC ACID. [Concomitant]
     Active Substance: VALPROIC ACID
     Indication: INSOMNIA
  7. PANTOPRAZOLE [Suspect]
     Active Substance: PANTOPRAZOLE
     Dosage: 40 MG, QD
  8. VALPROIC ACID. [Concomitant]
     Active Substance: VALPROIC ACID
     Indication: TENSION
  9. ASPIRIN. [Suspect]
     Active Substance: ASPIRIN
     Dosage: 100 MG, QD
  10. PROPRANOLOL HYDROCHLORIDE. [Suspect]
     Active Substance: PROPRANOLOL HYDROCHLORIDE
     Dosage: 160 MG, QD
  11. NITROGLYCERIN. [Suspect]
     Active Substance: NITROGLYCERIN
     Dosage: 0.8 MG, UNK (OCCASIONALLY)
  12. VALPROIC ACID. [Concomitant]
     Active Substance: VALPROIC ACID
     Indication: AFFECTIVE DISORDER
     Dosage: 7.5 MG, QD
  13. VALPROIC ACID. [Concomitant]
     Active Substance: VALPROIC ACID
     Indication: AFFECTIVE DISORDER
     Dosage: 2000 MG, QD
  14. ESCITALOPRAM [Concomitant]
     Active Substance: ESCITALOPRAM OXALATE
     Dosage: 5 MG, UNK
  15. LORAZEPAM. [Concomitant]
     Active Substance: LORAZEPAM
     Indication: TENSION
     Dosage: 7.5 MG, QD

REACTIONS (5)
  - Tremor [Unknown]
  - Depression [Recovering/Resolving]
  - Gastrointestinal disorder [Unknown]
  - Cognitive disorder [Unknown]
  - Hyperhidrosis [Recovering/Resolving]
